FAERS Safety Report 19630003 (Version 1)
Quarter: 2021Q3

REPORT INFORMATION
  Report Type: Spontaneous
  Country: US (occurrence: US)
  Receive Date: 20210729
  Receipt Date: 20210729
  Transmission Date: 20211014
  Serious: Yes (Other)
  Sender: FDA-Public Use
  Company Number: US-GLAXOSMITHKLINE-US2021GSK161310

PATIENT
  Sex: Female

DRUGS (2)
  1. RANITIDINE. [Suspect]
     Active Substance: RANITIDINE
     Indication: ILLNESS
     Dosage: 150 MG, 3 X DAILY
     Route: 065
     Dates: start: 201106, end: 201911
  2. RANITIDINE. [Suspect]
     Active Substance: RANITIDINE
     Indication: ILLNESS
     Dosage: 150 MG, 3 X DAILY
     Route: 065
     Dates: start: 201106, end: 201911

REACTIONS (2)
  - Gastric cancer [Unknown]
  - Breast cancer [Unknown]
